FAERS Safety Report 8478806-1 (Version None)
Quarter: 2012Q2

REPORT INFORMATION
  Report Type: 
  Country: None (occurrence: None)
  Receive Date: 20120629
  Receipt Date: 20120621
  Transmission Date: 20120825
  Serious: Yes (Other)
  Sender: FDA-Public Use
  Company Number: SG-BAYER-2012-061213

PATIENT
  Age: 47 Year
  Sex: Female

DRUGS (1)
  1. ASPIRIN [Suspect]
     Dosage: 100 MG, OM
     Dates: start: 20120511, end: 20120512

REACTIONS (2)
  - ANGIOEDEMA [None]
  - URTICARIA [None]
